FAERS Safety Report 12165307 (Version 1)
Quarter: 2016Q1

REPORT INFORMATION
  Report Type: Spontaneous
  Country: JP (occurrence: JP)
  Receive Date: 20160309
  Receipt Date: 20160309
  Transmission Date: 20160526
  Serious: Yes (Life-Threatening, Other)
  Sender: FDA-Public Use
  Company Number: JP-PFIZER INC-2016078776

PATIENT
  Age: 67 Year
  Sex: Female

DRUGS (13)
  1. MUCOSTA [Concomitant]
     Active Substance: REBAMIPIDE
  2. PARIET [Concomitant]
     Active Substance: RABEPRAZOLE SODIUM
  3. FLOMOX [Concomitant]
     Active Substance: CEFCAPENE PIVOXIL HYDROCHLORIDE HYDRATE
  4. MYSLEE [Interacting]
     Active Substance: ZOLPIDEM TARTRATE
     Indication: INSOMNIA
     Dosage: 10 MG, 1X/DAY
     Route: 048
     Dates: start: 20081017
  5. NORVASC [Concomitant]
     Active Substance: AMLODIPINE BESYLATE
  6. LYRICA [Suspect]
     Active Substance: PREGABALIN
     Indication: SCIATICA
     Dosage: 25 MG, 1X/DAY (EVENING)
     Route: 048
     Dates: start: 20160126, end: 20160126
  7. LYRICA [Interacting]
     Active Substance: PREGABALIN
     Indication: NEURALGIA
  8. SHAKUYAKUKANZOTO [Concomitant]
     Active Substance: HERBALS
  9. LOXONIN [Concomitant]
     Active Substance: LOXOPROFEN SODIUM
  10. CRESTOR [Concomitant]
     Active Substance: ROSUVASTATIN CALCIUM
  11. EDIROL [Concomitant]
     Active Substance: ELDECALCITOL
  12. TIRADINE [Concomitant]
  13. MS ONSHIPPU [Concomitant]

REACTIONS (4)
  - Feeling abnormal [Unknown]
  - Drug interaction [Recovered/Resolved]
  - Loss of consciousness [Recovered/Resolved]
  - Somnolence [Unknown]

NARRATIVE: CASE EVENT DATE: 20160126
